FAERS Safety Report 8490920-3 (Version None)
Quarter: 2012Q2

REPORT INFORMATION
  Report Type: 
  Country: None (occurrence: None)
  Receive Date: 20120629
  Receipt Date: 20120629
  Transmission Date: 20120825
  Serious: Yes (Hospitalization)
  Sender: FDA-Public Use
  Company Number: None

PATIENT
  Age: 69 Year
  Sex: Female
  Weight: 51.7101 kg

DRUGS (1)
  1. PREDNISONE TAB [Suspect]
     Indication: DERMATITIS
     Dosage: 40 MG 1 DOSE PER DAY PO
     Route: 048
     Dates: start: 20120619, end: 20120619

REACTIONS (4)
  - ASTHENIA [None]
  - NAUSEA [None]
  - VISION BLURRED [None]
  - DIZZINESS [None]
